FAERS Safety Report 16391318 (Version 1)
Quarter: 2019Q2

REPORT INFORMATION
  Report Type: Spontaneous
  Country: US (occurrence: US)
  Receive Date: 20190604
  Receipt Date: 20190604
  Transmission Date: 20190711
  Serious: No
  Sender: FDA-Public Use
  Company Number: US-GLAXOSMITHKLINE-US2019GSK063659

PATIENT
  Sex: Male

DRUGS (3)
  1. PREDNISONE TABLET [Concomitant]
     Active Substance: PREDNISONE
     Dosage: 20 MG, BID
  2. ALBUTEROL SULFATE INHALATION POWDER [Suspect]
     Active Substance: ALBUTEROL SULFATE
     Indication: WHEEZING
     Dosage: UNK
     Dates: start: 20190331
  3. AZITHROMYCIN TABLET [Concomitant]
     Active Substance: AZITHROMYCIN
     Indication: BACTERIAL INFECTION
     Dosage: 250 MG, 2 TABLETS ON DAY, 1 TABLET DAY 2-5
     Route: 048

REACTIONS (5)
  - Device use error [Unknown]
  - Drug ineffective [Unknown]
  - Wrong technique in device usage process [Unknown]
  - Device damage [Unknown]
  - Cough [Not Recovered/Not Resolved]

NARRATIVE: CASE EVENT DATE: 2019
